FAERS Safety Report 6826836-5 (Version None)
Quarter: 2010Q3

REPORT INFORMATION
  Report Type: 
  Country: None (occurrence: None)
  Receive Date: 20100709
  Receipt Date: 20100706
  Transmission Date: 20110219
  Serious: Yes (Other)
  Sender: FDA-Public Use
  Company Number: DE-EISAI INC.-E3810-03843-SPO-DE

PATIENT
  Age: 44 Year
  Sex: Male

DRUGS (2)
  1. PARIET (RABEPRAZOLE) [Suspect]
     Dosage: UNKNOWN
     Route: 048
     Dates: start: 20040101, end: 20061001
  2. PARIET (RABEPRAZOLE) [Suspect]
     Indication: REFLUX OESOPHAGITIS

REACTIONS (1)
  - GASTRIC POLYPS [None]
